FAERS Safety Report 5955517-5 (Version None)
Quarter: 2008Q4

REPORT INFORMATION
  Report Type: 
  Country: None (occurrence: None)
  Receive Date: 20081117
  Receipt Date: 20081105
  Transmission Date: 20090506
  Serious: Yes (Other)
  Sender: FDA-Public Use
  Company Number: US-SANOFI-SYNTHELABO-A03200804348

PATIENT
  Sex: Female

DRUGS (1)
  1. AMBIEN CR [Suspect]
     Indication: DRUG USE FOR UNKNOWN INDICATION
     Route: 048

REACTIONS (6)
  - ADRENAL INSUFFICIENCY [None]
  - FEELING HOT [None]
  - INTENTIONAL DRUG MISUSE [None]
  - MIDDLE INSOMNIA [None]
  - NAUSEA [None]
  - OVERDOSE [None]
